FAERS Safety Report 9528933 (Version 1)
Quarter: 2013Q2

REPORT INFORMATION
  Report Type: Spontaneous
  Country: US (occurrence: None)
  Receive Date: 20130401
  Receipt Date: 20130401
  Transmission Date: 20140414
  Serious: Yes (Other)
  Sender: FDA-Public Use
  Company Number: PHEH2012US024083

PATIENT
  Age: 81 Year
  Sex: Female

DRUGS (4)
  1. EXELON PATCH (RIVASTIGMINE) TRANS-THERAPEUTIC SYSTEM [Suspect]
     Route: 062
  2. BENAZEPRIL (BENAZEPRIL) [Concomitant]
  3. GLIMEPIRIDE (GLIMEPIRIDE) [Concomitant]
  4. OMEPRAZOLE (OMEPRAZOLE) [Concomitant]

REACTIONS (9)
  - Convulsion [None]
  - Early satiety [None]
  - Wrong technique in drug usage process [None]
  - Loss of consciousness [None]
  - Fall [None]
  - Decreased appetite [None]
  - Weight decreased [None]
  - Dizziness [None]
  - Asthenia [None]
